FAERS Safety Report 8484363-6 (Version None)
Quarter: 2012Q3

REPORT INFORMATION
  Report Type: 
  Country: None (occurrence: None)
  Receive Date: 20120703
  Receipt Date: 20120627
  Transmission Date: 20120928
  Serious: Yes (Hospitalization, Other)
  Sender: FDA-Public Use
  Company Number: PHHY2012FR055450

PATIENT
  Sex: Male

DRUGS (6)
  1. MABTHERA [Suspect]
     Dosage: 500 MG, QW
     Route: 042
     Dates: start: 20120227
  2. AREDIA [Suspect]
     Indication: HYPERCALCAEMIA
     Dosage: 90ML/10ML
  3. SOLIRIS [Suspect]
     Dosage: 620 MG, QW
     Dates: start: 20120312, end: 20120327
  4. MABTHERA [Suspect]
     Dosage: 500 MG, QW
     Route: 042
     Dates: start: 20120213
  5. MABTHERA [Suspect]
     Dosage: 500 MG, QW
     Route: 042
     Dates: start: 20120217
  6. MABTHERA [Suspect]
     Dosage: 500 MG, QW
     Route: 042
     Dates: start: 20120305

REACTIONS (5)
  - ACUTE RESPIRATORY DISTRESS SYNDROME [None]
  - PLEURAL EFFUSION [None]
  - ANAPHYLACTIC SHOCK [None]
  - BRONCHIOLITIS [None]
  - INTERSTITIAL LUNG DISEASE [None]
